FAERS Safety Report 9848964 (Version 1)
Quarter: 2013Q4

REPORT INFORMATION
  Report Type: Spontaneous
  Country: US (occurrence: None)
  Receive Date: 20131226
  Receipt Date: 20131226
  Transmission Date: 20140711
  Serious: Yes (Hospitalization)
  Sender: FDA-Public Use
  Company Number: PHEH2013US006276

PATIENT
  Age: 59 Year
  Sex: Male

DRUGS (4)
  1. TRILEPTAL [Suspect]
  2. KEPPRA (LEVETIRACETAM) [Concomitant]
  3. PREDNISONE (PREDNISONE) [Concomitant]
  4. MUSCLE RELAXANTS (NO INGREDIENTS/SUBSTANCES) [Concomitant]

REACTIONS (1)
  - Blood sodium decreased [None]
